FAERS Safety Report 18254486 (Version 8)
Quarter: 2025Q2

REPORT INFORMATION
  Report Type: Spontaneous
  Country: US (occurrence: US)
  Receive Date: 20200910
  Receipt Date: 20250514
  Transmission Date: 20250716
  Serious: Yes (Life-Threatening, Hospitalization, Other)
  Sender: PFIZER
  Company Number: US-PFIZER INC-2020347990

PATIENT
  Age: 73 Year
  Sex: Female
  Weight: 77.56 kg

DRUGS (7)
  1. IBRANCE [Suspect]
     Active Substance: PALBOCICLIB
     Indication: Breast cancer metastatic
     Dates: start: 201910
  2. IBRANCE [Suspect]
     Active Substance: PALBOCICLIB
     Indication: HER2 negative breast cancer
     Dates: start: 202001
  3. IBRANCE [Suspect]
     Active Substance: PALBOCICLIB
     Route: 048
     Dates: start: 20201105
  4. PROVENTIL [Suspect]
     Active Substance: ALBUTEROL
  5. ANASTROZOLE [Concomitant]
     Active Substance: ANASTROZOLE
  6. SYNTHROID [Concomitant]
     Active Substance: LEVOTHYROXINE SODIUM
     Indication: Hypothyroidism
     Dosage: EVERY MORNING
  7. FULVESTRANT [Concomitant]
     Active Substance: FULVESTRANT

REACTIONS (23)
  - Cough [Not Recovered/Not Resolved]
  - Pneumonia [Not Recovered/Not Resolved]
  - Intervertebral disc degeneration [Not Recovered/Not Resolved]
  - Dyspnoea [Unknown]
  - Choking [Unknown]
  - Product use complaint [Unknown]
  - Smoke sensitivity [Not Recovered/Not Resolved]
  - Dysphagia [Unknown]
  - Vomiting [Unknown]
  - Breast pain [Unknown]
  - Malaise [Unknown]
  - Dysstasia [Unknown]
  - Back pain [Unknown]
  - Bradykinesia [Unknown]
  - Pain [Recovering/Resolving]
  - Musculoskeletal chest pain [Unknown]
  - Body height decreased [Unknown]
  - Mental disorder [Not Recovered/Not Resolved]
  - Gait disturbance [Not Recovered/Not Resolved]
  - Chronic obstructive pulmonary disease [Not Recovered/Not Resolved]
  - Asthenia [Not Recovered/Not Resolved]
  - Headache [Not Recovered/Not Resolved]
  - Dizziness [Not Recovered/Not Resolved]

NARRATIVE: CASE EVENT DATE: 20201101
